FAERS Safety Report 9290082 (Version 1)
Quarter: 2013Q2

REPORT INFORMATION
  Report Type: Spontaneous
  Country: US (occurrence: None)
  Receive Date: 20130514
  Receipt Date: 20130514
  Transmission Date: 20140414
  Serious: No
  Sender: FDA-Public Use
  Company Number: None

PATIENT
  Age: 42 Year
  Sex: Female

DRUGS (2)
  1. DOXYCYCLINE [Suspect]
     Indication: DERMATITIS
     Route: 048
     Dates: start: 201302, end: 201304
  2. DOXYCYCLINE [Suspect]
     Route: 048
     Dates: start: 201302, end: 201304

REACTIONS (1)
  - Constipation [None]
